FAERS Safety Report 9603055 (Version 1)
Quarter: 2013Q4

REPORT INFORMATION
  Report Type: Spontaneous
  Country: US (occurrence: US)
  Receive Date: 20131007
  Receipt Date: 20131007
  Transmission Date: 20140711
  Serious: Yes (Life-Threatening, Hospitalization)
  Sender: FDA-Public Use
  Company Number: US-BRISTOL-MYERS SQUIBB COMPANY-19458090

PATIENT
  Age: 61 Year
  Sex: Female
  Weight: 70.75 kg

DRUGS (7)
  1. BYETTA [Suspect]
     Indication: TYPE 2 DIABETES MELLITUS
     Dosage: NO OF DOSES:3
     Dates: start: 20130711, end: 20130712
  2. LANTUS [Concomitant]
     Route: 058
  3. COUMADIN [Concomitant]
     Route: 048
  4. CLONAZEPAM [Concomitant]
     Route: 048
  5. AMIODARONE [Concomitant]
     Route: 048
  6. AMBIEN [Concomitant]
     Route: 048
  7. FLUOXETINE [Concomitant]
     Route: 048

REACTIONS (10)
  - Renal failure acute [Recovered/Resolved]
  - Acute respiratory failure [Recovering/Resolving]
  - Metabolic acidosis [Recovering/Resolving]
  - Hyperkalaemia [Recovering/Resolving]
  - Electrocardiogram QT prolonged [Recovering/Resolving]
  - Atrial fibrillation [Recovering/Resolving]
  - Nausea [Recovering/Resolving]
  - Vomiting [Recovering/Resolving]
  - Mental status changes [Recovering/Resolving]
  - Hypovolaemia [Recovering/Resolving]
